FAERS Safety Report 25926493 (Version 4)
Quarter: 2025Q4

REPORT INFORMATION
  Report Type: Spontaneous
  Country: KR (occurrence: KR)
  Receive Date: 20251015
  Receipt Date: 20251124
  Transmission Date: 20260118
  Serious: Yes (Other)
  Sender: MYLAN
  Company Number: KR-MYLANLABS-2025M1079672

PATIENT
  Age: 42 Year
  Sex: Female
  Weight: 78.4 kg

DRUGS (10)
  1. CLOZARIL [Suspect]
     Active Substance: CLOZAPINE
     Indication: Bipolar disorder
     Dosage: 75 MILLIGRAM, HS
     Dates: start: 20220527
  2. CLOZARIL [Suspect]
     Active Substance: CLOZAPINE
     Indication: Bipolar II disorder
     Dosage: 50 MILLIGRAM, HS
  3. DEPAKOTE ER [Concomitant]
     Active Substance: DIVALPROEX SODIUM
     Dosage: 1000 MILLIGRAM, HS
     Dates: start: 20250304
  4. Lithan [Concomitant]
     Dosage: 600 MILLIGRAM, HS
     Dates: start: 20030331
  5. QUETIAPINE FUMARATE [Concomitant]
     Active Substance: QUETIAPINE FUMARATE
     Dosage: 12.5 MILLIGRAM, HS
     Dates: start: 20131128
  6. RIVOTRIL [Concomitant]
     Active Substance: CLONAZEPAM
     Dosage: 0.25 MILLIGRAM, HS
     Dates: start: 20090216
  7. PROPRANOLOL HYDROCHLORIDE [Concomitant]
     Active Substance: PROPRANOLOL HYDROCHLORIDE
     Dosage: 20 MILLIGRAM, HS
     Dates: start: 20020401
  8. MOSAPRIDE CITRATE [Concomitant]
     Active Substance: MOSAPRIDE CITRATE
     Dosage: 5 MILLIGRAM, HS
     Dates: start: 20250131
  9. MAGNESIUM HYDROXIDE [Concomitant]
     Active Substance: MAGNESIUM HYDROXIDE
     Dosage: 500 MILLIGRAM, HS
     Dates: start: 20190716
  10. ABILIFY [Concomitant]
     Active Substance: ARIPIPRAZOLE
     Dosage: 2.5 MILLIGRAM, HS
     Dates: start: 20120712

REACTIONS (4)
  - Diabetes mellitus [Unknown]
  - White blood cell count decreased [Recovered/Resolved]
  - Neutrophil count decreased [Recovered/Resolved]
  - Off label use [Unknown]

NARRATIVE: CASE EVENT DATE: 20250908
